FAERS Safety Report 4849919-8 (Version None)
Quarter: 2005Q4

REPORT INFORMATION
  Report Type: 
  Country: None (occurrence: None)
  Receive Date: 20051114
  Receipt Date: 20050404
  Transmission Date: 20060501
  Serious: Yes (Other)
  Sender: FDA-Public Use
  Company Number: 20050400086

PATIENT
  Sex: Female
  Weight: 4.536 kg

DRUGS (2)
  1. PROMETHAZINE [Suspect]
     Dosage: ONCE
     Dates: start: 20050402, end: 20050402
  2. NUBAIN [Concomitant]

REACTIONS (3)
  - BRADYCARDIA [None]
  - HYPOVENTILATION [None]
  - LETHARGY [None]
